FAERS Safety Report 18458446 (Version 1)
Quarter: 2020Q4

REPORT INFORMATION
  Report Type: Spontaneous
  Country: US (occurrence: US)
  Receive Date: 20201103
  Receipt Date: 20201103
  Transmission Date: 20210114
  Serious: No
  Sender: FDA-Public Use
  Company Number: US-VERTEX PHARMACEUTICALS-2020-021145

PATIENT
  Age: 33 Year
  Sex: Female
  Weight: 52 kg

DRUGS (16)
  1. TRIKAFTA [Suspect]
     Active Substance: ELEXACAFTOR\IVACAFTOR\TEZACAFTOR
     Indication: CYSTIC FIBROSIS
     Dosage: 2 ORANGE TABS (100 MG ELEXA/ 50 MG TEZA/ 75 MG IVA) AM AND 1 BLUE TAB (150 MG IVA) IN PM
     Route: 048
     Dates: start: 20201015
  2. LITHIUM CARBONATE. [Concomitant]
     Active Substance: LITHIUM CARBONATE
     Dosage: 300 MG
  3. BIOTIN [Concomitant]
     Active Substance: BIOTIN
     Dosage: 10 MG
  4. TYLENOL PM EXTRA STRENGTH [Concomitant]
     Active Substance: ACETAMINOPHEN\DIPHENHYDRAMINE HYDROCHLORIDE
  5. RITALIN [Concomitant]
     Active Substance: METHYLPHENIDATE HYDROCHLORIDE
  6. SALINE [SODIUM CHLORIDE] [Concomitant]
     Active Substance: SODIUM CHLORIDE
  7. ZENPEP [Concomitant]
     Active Substance: PANCRELIPASE AMYLASE\PANCRELIPASE LIPASE\PANCRELIPASE PROTEASE
     Dosage: 20-63-84K
  8. PULMOZYME [Concomitant]
     Active Substance: DORNASE ALFA
  9. CULTURELLE [Concomitant]
     Active Substance: LACTOBACILLUS RHAMNOSUS
     Dosage: 10 B CELL CAPSULE
  10. HYPERSAL [Concomitant]
     Active Substance: SODIUM CHLORIDE
  11. TOBRAMYCIN. [Concomitant]
     Active Substance: TOBRAMYCIN
  12. HUMATE-P [Concomitant]
     Active Substance: HUMAN COAGULATION FACTOR VIII/VON WILLEBRAND FACTOR COMPLEX
     Dosage: 1000-2400 VIAL
  13. TRANEXAMIC ACID. [Concomitant]
     Active Substance: TRANEXAMIC ACID
     Dosage: 1000 MG/10 AMPUL
  14. AMBIEN [Concomitant]
     Active Substance: ZOLPIDEM TARTRATE
  15. IPRATROPIUM/ALBUTEROL [Concomitant]
     Active Substance: ALBUTEROL\IPRATROPIUM
  16. CAYSTON [Concomitant]
     Active Substance: AZTREONAM

REACTIONS (9)
  - Fatigue [Unknown]
  - Sputum discoloured [Unknown]
  - Stress [Unknown]
  - Cough [Unknown]
  - Sinus congestion [Recovering/Resolving]
  - Nasal congestion [Recovering/Resolving]
  - Paranasal sinus discomfort [Unknown]
  - Rhinorrhoea [Unknown]
  - Acne [Recovered/Resolved]

NARRATIVE: CASE EVENT DATE: 202010
